FAERS Safety Report 4560914-9 (Version None)
Quarter: 2005Q1

REPORT INFORMATION
  Report Type: 
  Country: None (occurrence: None)
  Receive Date: 20050126
  Receipt Date: 20040107
  Transmission Date: 20050727
  Serious: No
  Sender: FDA-Public Use
  Company Number: US-BRISTOL-MYERS SQUIBB COMPANY-12471991

PATIENT
  Age: 87 Year
  Sex: Female
  Weight: 59 kg

DRUGS (4)
  1. GLUCOPHAGE [Suspect]
     Indication: DIABETES MELLITUS
     Route: 048
     Dates: start: 20010801
  2. VITAMIN B12 + MINERALS [Concomitant]
  3. TRENTAL [Concomitant]
  4. GLUCOTROL XL [Concomitant]

REACTIONS (2)
  - AGITATION [None]
  - DIARRHOEA [None]
